FAERS Safety Report 8896368 (Version 2)
Quarter: 2013Q1

REPORT INFORMATION
  Report Type: Spontaneous
  Country: US (occurrence: None)
  Receive Date: 20121102
  Receipt Date: 20121214
  Transmission Date: 20140127
  Serious: Yes (Hospitalization)
  Sender: FDA-Public Use
  Company Number: 2012-001494

PATIENT
  Age: 69 Year
  Sex: Female

DRUGS (64)
  1. ACTONEL [Suspect]
     Dosage: ONCE MONTHLY
     Route: 048
     Dates: start: 201102, end: 201105
  2. ACTONEL (RISEDRONATE SODIUM) TABLET, 35MG [Suspect]
     Route: 048
     Dates: start: 200210
  3. BONIVA [Suspect]
     Dosage: ONCE MONTHLY
     Route: 048
     Dates: start: 200608, end: 201102
  4. PREDNISONE [Concomitant]
  5. RESTASIS [Concomitant]
  6. HUMIRA [Concomitant]
  7. REMICADE [Concomitant]
  8. METHOTREXATE [Concomitant]
  9. LEUCOVORIN CALCIUM [Concomitant]
  10. PLAQUENIL [Concomitant]
  11. TYLENOL EXTRA STRENGTH [Concomitant]
  12. OXAPROZIN [Concomitant]
  13. HYDROCODONE HYDROCHLORIDE W/PARACETAMOL [Concomitant]
  14. PHENYTOIN SODIUM [Concomitant]
  15. GABAPENTIN [Concomitant]
  16. LIDODERM [Concomitant]
  17. FENTANYL [Concomitant]
  18. PRILOSEC [Concomitant]
  19. ASPIRIN [Concomitant]
  20. ATENOLOL [Concomitant]
  21. NORVASC [Concomitant]
  22. ELMIRON [Concomitant]
  23. NITROFURANTOIN [Concomitant]
  24. KEFLEX [Concomitant]
  25. DOXYCYCLINE [Concomitant]
  26. SILVER SULFADIAZINE [Concomitant]
  27. ARTIFICIAL TEARS [Concomitant]
  28. ANTIVERT [Concomitant]
  29. MULTIVITAMIN [Concomitant]
  30. VITAMIN B1 [Concomitant]
  31. VITAMIN B6 [Concomitant]
  32. VITAMIN E [Concomitant]
  33. CALCIUM [Concomitant]
  34. TUMS [Concomitant]
  35. GINKGO BILOBA [Concomitant]
  36. HERBAL LAXATIVE [Concomitant]
  37. BEANO [Concomitant]
  38. AZITHROMYCIN [Concomitant]
  39. MINOCYCLINE [Concomitant]
  40. PROTONIX (PANTOPRAZOLE SODIUM SESQUIHYDRATE) [Concomitant]
  41. RENOVA (TRETINOIN) [Concomitant]
  42. CELEBREX [Concomitant]
  43. ATROVENT [Concomitant]
  44. FLONASE [Concomitant]
  45. TUSSIONEX [Concomitant]
  46. BEXTRA [Concomitant]
  47. ULTRACET [Concomitant]
  48. MECLIZINE [Concomitant]
  49. DIFLUCAN [Concomitant]
  50. CIPROFLOXACIN (CIPROFLOXACIN) [Concomitant]
  51. CYCLOBENZAPRINE [Concomitant]
  52. METRONIDAZOLE [Concomitant]
  53. PROCTOSOL HC [Concomitant]
  54. HYOSCYAMINE [Concomitant]
  55. NULYTELY [Concomitant]
  56. COMPRO [Concomitant]
  57. TERCONAZOLE [Concomitant]
  58. DIPHENHYDRAMINE [Concomitant]
  59. FOLIC ACID [Concomitant]
  60. CLINDAMYCIN [Concomitant]
  61. DEXAMETHASONE [Concomitant]
  62. PREVACID [Suspect]
  63. ACTONEL (RISEDRONATE SODIUM) TABLET, 5MG [Suspect]
     Route: 048
     Dates: start: 20020220, end: 200208
  64. FOSAMAX (ALENDRONATE SODIUM) [Suspect]
     Route: 048
     Dates: start: 20010813, end: 200202

REACTIONS (13)
  - Femur fracture [None]
  - Fall [None]
  - Comminuted fracture [None]
  - Open fracture [None]
  - Atypical femur fracture [None]
  - Pathological fracture [None]
  - Femur fracture [None]
  - Wound haematoma [None]
  - Postoperative wound infection [None]
  - Wound infection staphylococcal [None]
  - Fracture nonunion [None]
  - Device breakage [None]
  - Foot fracture [None]
